FAERS Safety Report 5215103-1 (Version None)
Quarter: 2007Q1

REPORT INFORMATION
  Report Type: 
  Country: None (occurrence: None)
  Receive Date: 20070122
  Receipt Date: 20070110
  Transmission Date: 20070707
  Serious: Yes (Other)
  Sender: FDA-Public Use
  Company Number: US-PFIZER INC-2007001345

PATIENT
  Sex: Female
  Weight: 58.1 kg

DRUGS (10)
  1. CHANTIX [Suspect]
     Indication: SMOKING CESSATION THERAPY
     Dates: start: 20070101, end: 20070101
  2. QUININE [Concomitant]
  3. DOXEPIN HCL [Concomitant]
  4. LORAZEPAM [Concomitant]
  5. VERAPAMIL [Concomitant]
  6. SIMVASTATIN [Concomitant]
  7. ADVAIR DISKUS 100/50 [Concomitant]
     Indication: EMPHYSEMA
  8. MAXAIR [Concomitant]
     Indication: EMPHYSEMA
  9. SPIRIVA [Concomitant]
     Indication: EMPHYSEMA
  10. ALBUTEROL [Concomitant]
     Indication: EMPHYSEMA

REACTIONS (3)
  - CHEST DISCOMFORT [None]
  - DYSPNOEA [None]
  - LIP SWELLING [None]
